FAERS Safety Report 6208336-9 (Version None)
Quarter: 2009Q2

REPORT INFORMATION
  Report Type: 
  Country: None (occurrence: None)
  Receive Date: 20090529
  Receipt Date: 20090520
  Transmission Date: 20091009
  Serious: Yes (Disabling)
  Sender: FDA-Public Use
  Company Number: GB-ELI_LILLY_AND_COMPANY-GB200905003967

PATIENT
  Age: 75 Year
  Sex: Female
  Weight: 65.3 kg

DRUGS (3)
  1. FORTEO [Suspect]
     Indication: OSTEOPOROSIS
     Dosage: UNK, UNKNOWN
     Route: 058
     Dates: start: 20080310, end: 20081028
  2. BETAHISTINE DIHYDROCHLORIDE [Concomitant]
     Indication: MENIERE'S DISEASE
     Dosage: 3 D/F, UNKNOWN
     Route: 065
     Dates: start: 20080412
  3. LEVOTHYROXINE SODIUM [Concomitant]
     Dosage: 75 UG, UNKNOWN
     Route: 048

REACTIONS (7)
  - BALANCE DISORDER [None]
  - DEAFNESS [None]
  - DIZZINESS [None]
  - GAIT DISTURBANCE [None]
  - MENIERE'S DISEASE [None]
  - NAUSEA [None]
  - TINNITUS [None]
